FAERS Safety Report 13905552 (Version 1)
Quarter: 2017Q3

REPORT INFORMATION
  Report Type: Spontaneous
  Country: US (occurrence: None)
  Receive Date: 20170821
  Receipt Date: 20170821
  Transmission Date: 20171127
  Serious: No
  Sender: FDA-Public Use
  Company Number: None

PATIENT
  Age: 65 Year
  Sex: Female
  Weight: 65.77 kg

DRUGS (8)
  1. ASPIRIN. [Concomitant]
     Active Substance: ASPIRIN
  2. MULTIVITAMIN W/IRON [Concomitant]
  3. LISINOPRIL. [Concomitant]
     Active Substance: LISINOPRIL
  4. EFFIENT [Concomitant]
     Active Substance: PRASUGREL HYDROCHLORIDE
  5. ATORVASTATIN 10MG-GENERIC FOR ATORVASTATIN [Suspect]
     Active Substance: ATORVASTATIN CALCIUM
     Indication: PROPHYLAXIS
     Dosage: ?          QUANTITY:30 ;?
     Route: 048
     Dates: start: 20170505, end: 20170712
  6. ATORVASTATIN 10MG-GENERIC FOR ATORVASTATIN [Suspect]
     Active Substance: ATORVASTATIN CALCIUM
     Indication: BLOOD CHOLESTEROL INCREASED
     Dosage: ?          QUANTITY:30 ;?
     Route: 048
     Dates: start: 20170505, end: 20170712
  7. ATORVASTATIN 10MG-GENERIC FOR ATORVASTATIN [Suspect]
     Active Substance: ATORVASTATIN CALCIUM
     Indication: CHEST PAIN
     Dosage: ?          QUANTITY:30 ;?
     Route: 048
     Dates: start: 20170505, end: 20170712
  8. METOPROLOL. [Concomitant]
     Active Substance: METOPROLOL

REACTIONS (4)
  - Fatigue [None]
  - Dyspnoea [None]
  - Headache [None]
  - Pruritus generalised [None]

NARRATIVE: CASE EVENT DATE: 20170615
